FAERS Safety Report 9202365 (Version 1)
Quarter: 2013Q2

REPORT INFORMATION
  Report Type: Report from Study
  Country: KR (occurrence: KR)
  Receive Date: 20130401
  Receipt Date: 20130401
  Transmission Date: 20140414
  Serious: Yes (Other)
  Sender: FDA-Public Use
  Company Number: PHHY2013KR030046

PATIENT
  Sex: Female
  Weight: 67 kg

DRUGS (1)
  1. GLIVEC [Suspect]
     Indication: CHRONIC MYELOID LEUKAEMIA
     Dosage: 400 MG, QD
     Route: 048
     Dates: start: 20090828

REACTIONS (6)
  - Hypothyroidism [Unknown]
  - Weight increased [Unknown]
  - Generalised oedema [Unknown]
  - Suicidal ideation [Unknown]
  - Depression [Unknown]
  - Lacrimal disorder [Unknown]
